FAERS Safety Report 7003815-9 (Version None)
Quarter: 2010Q3

REPORT INFORMATION
  Report Type: 
  Country: None (occurrence: None)
  Receive Date: 20100920
  Receipt Date: 20100107
  Transmission Date: 20110219
  Serious: No
  Sender: FDA-Public Use
  Company Number: US-WYE-H12571009

PATIENT
  Sex: Male
  Weight: 83.99 kg

DRUGS (4)
  1. PRISTIQ [Suspect]
     Indication: DEPRESSION
     Route: 048
     Dates: start: 20090401
  2. CLONAZEPAM [Concomitant]
  3. TRAZODONE HCL [Suspect]
     Indication: INSOMNIA
     Route: 048
     Dates: start: 20090101, end: 20090101
  4. TRAZODONE HCL [Suspect]
     Route: 048
     Dates: start: 20090101

REACTIONS (3)
  - CONDITION AGGRAVATED [None]
  - INSOMNIA [None]
  - PAIN IN EXTREMITY [None]
